FAERS Safety Report 25679558 (Version 3)
Quarter: 2025Q3

REPORT INFORMATION
  Report Type: Spontaneous
  Country: JP (occurrence: JP)
  Receive Date: 20250814
  Receipt Date: 20250826
  Transmission Date: 20251020
  Serious: Yes (Death, Hospitalization, Other)
  Sender: TAKEDA
  Company Number: JP-TAKEDA-2025TJP008187

PATIENT
  Age: 67 Year
  Sex: Male

DRUGS (1)
  1. FRUZAQLA [Suspect]
     Active Substance: FRUQUINTINIB
     Indication: Colon cancer recurrent
     Dosage: 5 MILLIGRAM, QD
     Dates: start: 20250627, end: 20250811

REACTIONS (2)
  - Colorectal cancer metastatic [Fatal]
  - Disorientation [Fatal]

NARRATIVE: CASE EVENT DATE: 20250811
